FAERS Safety Report 25825933 (Version 3)
Quarter: 2025Q4

REPORT INFORMATION
  Report Type: Report from Study
  Country: US (occurrence: US)
  Receive Date: 20250919
  Receipt Date: 20251024
  Transmission Date: 20260118
  Serious: Yes (Other)
  Sender: MALLINCKRODT
  Company Number: US-MALLINCKRODT-MNK202505771

PATIENT
  Age: 71 Year
  Sex: Female

DRUGS (3)
  1. CORTICOTROPIN [Suspect]
     Active Substance: CORTICOTROPIN
     Indication: Pulmonary sarcoidosis
     Route: 058
     Dates: start: 20241113
  2. INFLUENZA VIRUS VACCINE [Concomitant]
     Active Substance: INFLUENZA VIRUS VACCINE
     Dosage: UNKNOWN
  3. COVID-19 VACCINE [Concomitant]
     Dosage: UNKNOWN

REACTIONS (5)
  - Angina pectoris [Unknown]
  - Pneumonia [Not Recovered/Not Resolved]
  - Pulmonary pain [Unknown]
  - Heart rate increased [Unknown]
  - Blood pressure increased [Unknown]
